FAERS Safety Report 8280321-5 (Version None)
Quarter: 2012Q2

REPORT INFORMATION
  Report Type: 
  Country: None (occurrence: None)
  Receive Date: 20120412
  Receipt Date: 20120209
  Transmission Date: 20120825
  Serious: No
  Sender: FDA-Public Use
  Company Number: US-ASTRAZENECA-2012SE08796

PATIENT
  Age: 61 Year
  Sex: Female
  Weight: 51.3 kg

DRUGS (4)
  1. PRILOSEC [Suspect]
     Route: 048
  2. WISTACIUS [Concomitant]
     Indication: EYE DISORDER
  3. MULTI-VITAMINS [Concomitant]
  4. NEXIUM [Suspect]
     Indication: GASTROOESOPHAGEAL REFLUX DISEASE
     Route: 048
     Dates: start: 20120207

REACTIONS (7)
  - FLATULENCE [None]
  - DRUG INEFFECTIVE [None]
  - HEADACHE [None]
  - DYSPEPSIA [None]
  - GASTROOESOPHAGEAL REFLUX DISEASE [None]
  - DRY EYE [None]
  - DRY MOUTH [None]
